FAERS Safety Report 6026735-5 (Version None)
Quarter: 2009Q1

REPORT INFORMATION
  Report Type: 
  Country: None (occurrence: None)
  Receive Date: 20090104
  Receipt Date: 20081223
  Transmission Date: 20090719
  Serious: Yes (Other)
  Sender: FDA-Public Use
  Company Number: US-ELI_LILLY_AND_COMPANY-US200812002125

PATIENT
  Age: 68 Year
  Sex: Female
  Weight: 58.957 kg

DRUGS (1)
  1. FORTEO [Suspect]
     Indication: OSTEOPOROSIS
     Dosage: 20 UG, UNK
     Dates: start: 20080101, end: 20081101

REACTIONS (1)
  - ANGIOEDEMA [None]
